FAERS Safety Report 9503318 (Version 3)
Quarter: 2013Q3

REPORT INFORMATION
  Report Type: Spontaneous
  Country: US (occurrence: None)
  Receive Date: 20130225
  Receipt Date: 20130909
  Transmission Date: 20140515
  Serious: Yes (Hospitalization, Other)
  Sender: FDA-Public Use
  Company Number: 369474

PATIENT
  Sex: Male

DRUGS (6)
  1. VICTOZA [Suspect]
     Indication: TYPE 2 DIABETES MELLITUS
     Route: 058
     Dates: start: 20121015, end: 20130107
  2. METFORMIN (METFORMIN) [Concomitant]
  3. CRESTOR (ROSUVASTATIN CALCIUM) [Concomitant]
  4. ZETIA (EZETIMIBE) [Concomitant]
  5. K-DUR (POTASSIUM CHLORIDE) [Concomitant]
  6. LASIX /00032601/ (FUROSEMIDE) UNK, UNKUNK [Concomitant]

REACTIONS (1)
  - Pancreatitis [None]
